FAERS Safety Report 4360893-3 (Version None)
Quarter: 2004Q2

REPORT INFORMATION
  Report Type: 
  Country: None (occurrence: None)
  Receive Date: 20040520
  Receipt Date: 20040511
  Transmission Date: 20050107
  Serious: Yes (Hospitalization)
  Sender: FDA-Public Use
  Company Number: 200411891FR

PATIENT
  Age: 85 Year
  Sex: Female
  Weight: 60 kg

DRUGS (5)
  1. LASIX [Suspect]
     Indication: ESSENTIAL HYPERTENSION
     Route: 048
     Dates: start: 20040305, end: 20040409
  2. PROZAC [Suspect]
     Indication: DEPRESSION
     Route: 048
     Dates: start: 20040102, end: 20040410
  3. PRIMAXIN [Concomitant]
     Route: 042
     Dates: start: 20031224
  4. LEVOTHYROXINE SODIUM [Concomitant]
     Route: 048
  5. VANCOMYCIN [Concomitant]
     Route: 042
     Dates: start: 20031224

REACTIONS (3)
  - ASTHENIA [None]
  - INAPPROPRIATE ANTIDIURETIC HORMONE SECRETION [None]
  - NAUSEA [None]
